FAERS Safety Report 5214069-8 (Version None)
Quarter: 2007Q1

REPORT INFORMATION
  Report Type: 
  Country: None (occurrence: None)
  Receive Date: 20070122
  Receipt Date: 20070118
  Transmission Date: 20070707
  Serious: Yes (Hospitalization)
  Sender: FDA-Public Use
  Company Number: DE-BRISTOL-MYERS SQUIBB COMPANY-13487376

PATIENT
  Age: 67 Year
  Sex: Female
  Weight: 58 kg

DRUGS (8)
  1. CISPLATIN [Suspect]
     Indication: NON-SMALL CELL LUNG CANCER
     Route: 042
     Dates: start: 20060706, end: 20060706
  2. GEMCITABINE [Suspect]
     Indication: NON-SMALL CELL LUNG CANCER
     Route: 042
     Dates: start: 20060706, end: 20060804
  3. PF-3512676 [Suspect]
     Indication: NON-SMALL CELL LUNG CANCER
     Route: 058
     Dates: start: 20060713, end: 20060818
  4. TRAMADOL HCL [Concomitant]
     Route: 048
     Dates: start: 20060601
  5. PARACETAMOL [Concomitant]
     Route: 048
     Dates: start: 20060601
  6. NEXIUM [Concomitant]
     Route: 048
     Dates: start: 20060601
  7. CARBIMAZOLE [Concomitant]
     Route: 048
  8. PASPERTIN [Concomitant]
     Route: 048
     Dates: start: 20060601

REACTIONS (1)
  - DEHYDRATION [None]
